FAERS Safety Report 15814720 (Version 9)
Quarter: 2019Q3

REPORT INFORMATION
  Report Type: Spontaneous
  Country: US (occurrence: US)
  Receive Date: 20190111
  Receipt Date: 20190731
  Transmission Date: 20191004
  Serious: Yes (Death, Hospitalization)
  Sender: FDA-Public Use
  Company Number: US-ACTELION-A-US2017-161298

PATIENT
  Age: 52 Year
  Sex: Female
  Weight: 44.44 kg

DRUGS (8)
  1. VELETRI [Suspect]
     Active Substance: EPOPROSTENOL
     Dosage: 48.7 NG/KG, PER MIN
     Route: 042
  2. VELETRI [Suspect]
     Active Substance: EPOPROSTENOL
     Dosage: 20.2 NG/KG, PER MIN
     Route: 042
  3. VELETRI [Suspect]
     Active Substance: EPOPROSTENOL
     Indication: PULMONARY ARTERIAL HYPERTENSION
     Dosage: 25 NG/KG, PER MIN
     Route: 042
  4. VELETRI [Suspect]
     Active Substance: EPOPROSTENOL
     Dosage: 3 NG/KG, PER MIN
     Route: 042
     Dates: start: 20171006
  5. VELETRI [Suspect]
     Active Substance: EPOPROSTENOL
     Dosage: 23 NG/KG, PER MIN
     Route: 042
  6. ADCIRCA [Concomitant]
     Active Substance: TADALAFIL
  7. VELETRI [Suspect]
     Active Substance: EPOPROSTENOL
     Dosage: 48.2 NG/KG, PER MIN
     Route: 042
  8. OPSUMIT [Concomitant]
     Active Substance: MACITENTAN

REACTIONS (16)
  - Right ventricular failure [Fatal]
  - Influenza like illness [Recovered/Resolved]
  - Hospitalisation [Unknown]
  - Headache [Unknown]
  - Adverse event [Unknown]
  - Vomiting [Recovered/Resolved]
  - Pulmonary arterial hypertension [Fatal]
  - Abdominal distension [Unknown]
  - Malaise [Unknown]
  - Nausea [Unknown]
  - Influenza [Unknown]
  - Scleroderma [Fatal]
  - Pneumonia [Unknown]
  - Diarrhoea [Not Recovered/Not Resolved]
  - Anxiety [Unknown]
  - Upper respiratory tract infection [Unknown]

NARRATIVE: CASE EVENT DATE: 20190606
